FAERS Safety Report 14141164 (Version 3)
Quarter: 2019Q2

REPORT INFORMATION
  Report Type: Spontaneous
  Country: US (occurrence: US)
  Receive Date: 20171030
  Receipt Date: 20190624
  Transmission Date: 20190711
  Serious: Yes (Hospitalization, Other)
  Sender: FDA-Public Use
  Company Number: US-PFIZER INC-2017465797

PATIENT
  Age: 69 Year
  Sex: Female

DRUGS (2)
  1. XELJANZ XR [Suspect]
     Active Substance: TOFACITINIB CITRATE
     Indication: RHEUMATOID ARTHRITIS
     Dosage: 11 MG, 1X/DAY
     Dates: start: 20170522
  2. XELJANZ XR [Suspect]
     Active Substance: TOFACITINIB CITRATE
     Dosage: UNK
     Dates: start: 20180508

REACTIONS (8)
  - Parotitis [Recovering/Resolving]
  - Blood potassium decreased [Recovering/Resolving]
  - Abdominal discomfort [Unknown]
  - Poor quality sleep [Unknown]
  - Stress [Unknown]
  - Heart rate increased [Recovering/Resolving]
  - Nausea [Unknown]
  - Fall [Unknown]

NARRATIVE: CASE EVENT DATE: 20190524
